FAERS Safety Report 15958225 (Version 1)
Quarter: 2019Q1

REPORT INFORMATION
  Report Type: Spontaneous
  Country: SI (occurrence: SI)
  Receive Date: 20190213
  Receipt Date: 20190213
  Transmission Date: 20190417
  Serious: Yes (Other)
  Sender: FDA-Public Use
  Company Number: SI-ANIPHARMA-2019-SI-000001

PATIENT
  Age: 53 Year
  Sex: Female
  Weight: 130 kg

DRUGS (3)
  1. INDAPAMIDE. [Suspect]
     Active Substance: INDAPAMIDE
     Dosage: UNK
     Route: 065
  2. CARVEDILOL. [Suspect]
     Active Substance: CARVEDILOL
     Dosage: DOUBLE THE DOSE EVERY TWO WEEKS
     Route: 048
  3. CANDESARTAN. [Suspect]
     Active Substance: CANDESARTAN
     Indication: PRODUCT USED FOR UNKNOWN INDICATION
     Dosage: 16 MG UNK / UNK
     Route: 048

REACTIONS (10)
  - Respiratory rate increased [Unknown]
  - Ejection fraction decreased [Unknown]
  - Cardiomegaly [Unknown]
  - QRS axis abnormal [Unknown]
  - Heart rate increased [Unknown]
  - Cardiac failure [Unknown]
  - Blood pressure increased [Unknown]
  - Oedema peripheral [Unknown]
  - Bundle branch block left [Unknown]
  - Oedema [Unknown]

NARRATIVE: CASE EVENT DATE: 2018
